FAERS Safety Report 4926991-8 (Version None)
Quarter: 2006Q1

REPORT INFORMATION
  Report Type: 
  Country: None (occurrence: None)
  Receive Date: 20060228
  Receipt Date: 20050928
  Transmission Date: 20060701
  Serious: No
  Sender: FDA-Public Use
  Company Number: US-GLAXOSMITHKLINE-A0576268A

PATIENT
  Age: 18 Year
  Sex: Female

DRUGS (2)
  1. LAMICTAL [Suspect]
     Indication: EPILEPSY
     Dosage: 50MG PER DAY
     Route: 048
     Dates: start: 20050913, end: 20050920
  2. NO CONCURRENT MEDICATION [Concomitant]

REACTIONS (3)
  - RASH ERYTHEMATOUS [None]
  - SWELLING [None]
  - URTICARIA [None]
